FAERS Safety Report 15382685 (Version 8)
Quarter: 2019Q3

REPORT INFORMATION
  Report Type: Spontaneous
  Country: US (occurrence: US)
  Receive Date: 20180913
  Receipt Date: 20190927
  Transmission Date: 20191004
  Serious: Yes (Other)
  Sender: FDA-Public Use
  Company Number: US-INCYTE CORPORATION-2018IN009112

PATIENT

DRUGS (5)
  1. JAKAFI [Suspect]
     Active Substance: RUXOLITINIB
     Dosage: 20 MILLIGRAM, BID
     Route: 048
     Dates: start: 20180818
  2. JAKAFI [Suspect]
     Active Substance: RUXOLITINIB
     Dosage: 15 MILLIGRAM, BID
     Route: 048
     Dates: start: 20180818
  3. JAKAFI [Suspect]
     Active Substance: RUXOLITINIB
     Dosage: 15 MILLIGRAM, BID
     Route: 048
     Dates: start: 20180818
  4. JAKAFI [Suspect]
     Active Substance: RUXOLITINIB
     Dosage: 15 MILLIGRAM, BID
     Route: 048
  5. JAKAFI [Suspect]
     Active Substance: RUXOLITINIB
     Indication: MYELOFIBROSIS
     Dosage: 20 MILLIGRAM, BID
     Route: 048
     Dates: start: 20180817

REACTIONS (22)
  - Micturition disorder [Unknown]
  - Gait disturbance [Unknown]
  - Neuropathy peripheral [Unknown]
  - Haemoglobin decreased [Unknown]
  - Platelet count decreased [Unknown]
  - Abdominal pain upper [Unknown]
  - Limb discomfort [Unknown]
  - Diarrhoea [Unknown]
  - Constipation [Unknown]
  - Depressed mood [Unknown]
  - Product dose omission [Unknown]
  - Balance disorder [Unknown]
  - Dehydration [Not Recovered/Not Resolved]
  - Eye disorder [Unknown]
  - Blood count abnormal [Unknown]
  - Dizziness [Not Recovered/Not Resolved]
  - Mental disorder [Unknown]
  - Splenomegaly [Unknown]
  - Urinary tract infection [Not Recovered/Not Resolved]
  - Nausea [Unknown]
  - Sleep disorder [Unknown]
  - Asthenia [Unknown]
